FAERS Safety Report 6524885-8 (Version None)
Quarter: 2010Q1

REPORT INFORMATION
  Report Type: 
  Country: None (occurrence: None)
  Receive Date: 20100104
  Receipt Date: 20091223
  Transmission Date: 20100710
  Serious: Yes (Other)
  Sender: FDA-Public Use
  Company Number: US-SANOFI-AVENTIS-2009SA004255

PATIENT
  Age: 64 Year
  Sex: Male
  Weight: 88.63 kg

DRUGS (7)
  1. MULTAQ [Suspect]
     Indication: ATRIAL FIBRILLATION
     Route: 048
     Dates: start: 20091019, end: 20091119
  2. MULTAQ [Suspect]
     Route: 048
     Dates: start: 20091101, end: 20091101
  3. COZAAR [Concomitant]
     Indication: HYPERTENSION
     Dates: start: 19990101
  4. COUMADIN [Concomitant]
     Indication: CEREBROVASCULAR ACCIDENT PROPHYLAXIS
     Dates: start: 20060101
  5. LIPITOR [Concomitant]
     Dates: start: 20030101
  6. ZETIA [Concomitant]
     Dates: start: 20030101
  7. TAMSULOSIN HCL [Concomitant]
     Indication: URINARY TRACT DISORDER
     Dates: start: 20000101

REACTIONS (2)
  - ATRIAL FIBRILLATION [None]
  - INCORRECT DOSE ADMINISTERED [None]
